FAERS Safety Report 6998651-3 (Version None)
Quarter: 2010Q3

REPORT INFORMATION
  Report Type: 
  Country: None (occurrence: None)
  Receive Date: 20100920
  Receipt Date: 20070613
  Transmission Date: 20110219
  Serious: Yes (Other)
  Sender: FDA-Public Use
  Company Number: US-ASTRAZENECA-2006UW11987

PATIENT
  Age: 13704 Day
  Sex: Female
  Weight: 132 kg

DRUGS (13)
  1. SEROQUEL [Suspect]
     Indication: DEPRESSION
     Route: 048
     Dates: start: 19970101, end: 20020101
  2. SEROQUEL [Suspect]
     Route: 048
     Dates: start: 20060726
  3. ABILIFY [Concomitant]
  4. CLOZAPINE [Concomitant]
  5. HALDOL [Concomitant]
  6. NAVANE [Concomitant]
  7. RISPERDAL [Concomitant]
     Dates: start: 20020206
  8. GLUCOPHAGE [Concomitant]
     Route: 048
     Dates: start: 20020206
  9. ALBUTEROL [Concomitant]
     Dates: start: 20020206
  10. DEPAKOTE [Concomitant]
     Dosage: 500 - 1500 MG
     Route: 048
     Dates: start: 20040616
  11. GLIPIZIDE [Concomitant]
     Dates: start: 20040816
  12. COUMADIN [Concomitant]
     Route: 048
     Dates: start: 20060726
  13. HYDROCHLOROTHIAZIDE [Concomitant]
     Route: 048
     Dates: start: 20060726

REACTIONS (5)
  - DIABETES MELLITUS [None]
  - DIABETIC KETOACIDOSIS [None]
  - HYPOGLYCAEMIA [None]
  - PANCREATITIS [None]
  - TYPE 2 DIABETES MELLITUS [None]
